FAERS Safety Report 18557106 (Version 2)
Quarter: 2020Q4

REPORT INFORMATION
  Report Type: Report from Study
  Country: MX (occurrence: MX)
  Receive Date: 20201129
  Receipt Date: 20201203
  Transmission Date: 20210114
  Serious: Yes (Death)
  Sender: FDA-Public Use
  Company Number: MX-UCBSA-2020047716

PATIENT
  Age: 85 Year
  Sex: Male
  Weight: 90 kg

DRUGS (10)
  1. ROTIGOTINE [Suspect]
     Active Substance: ROTIGOTINE
     Dosage: 8+4 MG ONCE DAILY
     Route: 062
     Dates: end: 20200412
  2. ROTIGOTINE [Suspect]
     Active Substance: ROTIGOTINE
     Dosage: 6 MILLIGRAM, ONCE DAILY (QD)
     Route: 062
  3. ROTIGOTINE [Suspect]
     Active Substance: ROTIGOTINE
     Dosage: 8 MILLIGRAM, ONCE DAILY (QD)
     Route: 062
  4. AMBROXOL [Concomitant]
     Active Substance: AMBROXOL
     Indication: INFLAMMATION
     Dosage: UNK
  5. LEVODOPA [Concomitant]
     Active Substance: LEVODOPA
     Indication: PARKINSON^S DISEASE
     Dosage: 1 DOSAGE FORM, ONCE DAILY (QD)
     Route: 048
     Dates: end: 20200412
  6. PARACETAMOL [Concomitant]
     Active Substance: ACETAMINOPHEN
     Indication: PAIN
     Dosage: 500 MILLIGRAM, 3X/DAY (TID)
  7. ROTIGOTINE [Suspect]
     Active Substance: ROTIGOTINE
     Indication: PARKINSON^S DISEASE
     Dosage: 2 MILLIGRAM, ONCE DAILY (QD)
     Route: 062
  8. ROTIGOTINE [Suspect]
     Active Substance: ROTIGOTINE
     Dosage: 4 MILLIGRAM, ONCE DAILY (QD)
     Route: 062
  9. AMBROXOL [Concomitant]
     Active Substance: AMBROXOL
     Indication: RESPIRATORY DISORDER
  10. ASPRIN [Concomitant]
     Active Substance: ASPIRIN
     Indication: PAIN
     Dosage: 1 DOSAGE FORM, ONCE DAILY (QD)

REACTIONS (1)
  - Pneumonia [Fatal]

NARRATIVE: CASE EVENT DATE: 202004
